FAERS Safety Report 9971035 (Version 2)
Quarter: 2014Q1

REPORT INFORMATION
  Report Type: Report from Study
  Country: US (occurrence: US)
  Receive Date: 20140306
  Receipt Date: 20140306
  Transmission Date: 20141002
  Serious: No
  Sender: FDA-Public Use
  Company Number: US-ABBVIE-13P-163-1133540-00

PATIENT
  Age: 39 Year
  Sex: Female
  Weight: 49.03 kg

DRUGS (13)
  1. HUMIRA [Suspect]
     Indication: CROHN^S DISEASE
     Dates: start: 20130726, end: 20130906
  2. HUMIRA [Suspect]
     Indication: CROHN^S DISEASE
     Dates: start: 20130906
  3. FLONASE [Concomitant]
     Indication: HYPERSENSITIVITY
     Dosage: 1-2 SPRAYS PER NOSTRIL
  4. LISINOPRIL [Concomitant]
     Indication: HYPERTENSION
  5. PREDNISONE [Concomitant]
     Indication: CROHN^S DISEASE
  6. SINGULAIR [Concomitant]
     Indication: HYPERSENSITIVITY
  7. SINGULAIR [Concomitant]
     Indication: ASTHMA
  8. XANAX [Concomitant]
     Indication: ANXIETY
  9. PROAIR [Concomitant]
     Indication: ASTHMA
     Route: 055
  10. KLOR-CON [Concomitant]
     Indication: VOMITING
  11. KLOR-CON [Concomitant]
     Indication: DIARRHOEA
  12. REGLAN [Concomitant]
     Indication: NAUSEA
     Dosage: 1 TAB 30 MINUTES BEFORE MEALS AND AT BEDTIME IF NEEDED
  13. REGLAN [Concomitant]
     Indication: VOMITING

REACTIONS (4)
  - Injection site erythema [Recovered/Resolved]
  - Injection site pain [Recovered/Resolved]
  - Vomiting [Unknown]
  - Injection site reaction [Recovering/Resolving]
